FAERS Safety Report 20621657 (Version 1)
Quarter: 2022Q1

REPORT INFORMATION
  Report Type: Spontaneous
  Country: CZ (occurrence: None)
  Receive Date: 20220322
  Receipt Date: 20220322
  Transmission Date: 20220423
  Serious: Yes (Other)
  Sender: FDA-Public Use
  Company Number: CZ-Merck Healthcare KGaA-9306312

PATIENT
  Age: 73 Year
  Sex: Female

DRUGS (1)
  1. EUTHYROX [Suspect]
     Active Substance: LEVOTHYROXINE SODIUM
     Indication: Product used for unknown indication

REACTIONS (3)
  - Metastases to lymph nodes [Unknown]
  - Metastases to bone [Unknown]
  - Medullary thyroid cancer [Unknown]

NARRATIVE: CASE EVENT DATE: 20201101
